FAERS Safety Report 8401317 (Version 2)
Quarter: 2012Q4

REPORT INFORMATION
  Report Type: 
  Country: SE (occurrence: SE)
  Receive Date: 20120210
  Receipt Date: 20120905
  Transmission Date: 20130627
  Serious: Yes (Other)
  Sender: FDA-Public Use
  Company Number: SE-PFIZER INC-2012035165

PATIENT
  Age: 47 Year
  Sex: Female

DRUGS (3)
  1. ALPRAZOLAM [Suspect]
     Indication: DEPRESSION
     Dosage: UNK
  2. ALPRAZOLAM [Suspect]
     Indication: SUICIDE ATTEMPT
  3. ALPRAZOLAM [Suspect]
     Indication: ANXIETY

REACTIONS (10)
  - Depression [Unknown]
  - Asthenia [Unknown]
  - Reading disorder [Unknown]
  - Dysgraphia [Unknown]
  - Balance disorder [Unknown]
  - Anxiety [Unknown]
  - Derealisation [Unknown]
  - Pain [Unknown]
  - Abdominal pain upper [Unknown]
  - Bradyphrenia [Unknown]
